FAERS Safety Report 17549897 (Version 4)
Quarter: 2020Q2

REPORT INFORMATION
  Report Type: Spontaneous
  Country: US (occurrence: US)
  Receive Date: 20200317
  Receipt Date: 20200618
  Transmission Date: 20200713
  Serious: No
  Sender: FDA-Public Use
  Company Number: US-PFIZER INC-2020114664

PATIENT
  Age: 52 Year
  Sex: Female

DRUGS (1)
  1. XELJANZ XR [Suspect]
     Active Substance: TOFACITINIB CITRATE
     Indication: RHEUMATOID ARTHRITIS
     Dosage: 11 MG, 1X/DAY
     Route: 048
     Dates: start: 20200228

REACTIONS (8)
  - Hypertension [Unknown]
  - Hypotension [Unknown]
  - Oropharyngeal pain [Unknown]
  - Depression [Recovering/Resolving]
  - Headache [Unknown]
  - Pain [Recovering/Resolving]
  - Heart rate irregular [Unknown]
  - Blood pressure diastolic decreased [Recovered/Resolved]

NARRATIVE: CASE EVENT DATE: 2020
